FAERS Safety Report 8062301-8 (Version None)
Quarter: 2012Q1

REPORT INFORMATION
  Report Type: 
  Country: None (occurrence: None)
  Receive Date: 20120113
  Receipt Date: 20120105
  Transmission Date: 20120608
  Serious: Yes (Hospitalization, Other)
  Sender: FDA-Public Use
  Company Number: AUR-APL-2012-00218

PATIENT
  Age: 20 Year
  Sex: Female

DRUGS (4)
  1. ALBUTEROL SULFATE [Concomitant]
  2. AMOXICILLIN [Suspect]
     Indication: PRODUCT USED FOR UNKNOWN INDICATION
  3. PREDNISOLONE [Concomitant]
  4. SYMBICORT [Concomitant]

REACTIONS (3)
  - PNEUMONIA [None]
  - EXPIRED DRUG ADMINISTERED [None]
  - MATERNAL EXPOSURE DURING PREGNANCY [None]
